FAERS Safety Report 21228600 (Version 1)
Quarter: 2022Q3

REPORT INFORMATION
  Report Type: Report from Study
  Country: US (occurrence: None)
  Receive Date: 20220818
  Receipt Date: 20220818
  Transmission Date: 20221027
  Serious: Yes (Hospitalization)
  Sender: FDA-Public Use
  Company Number: US-ROCHE-3158127

PATIENT
  Age: 79 Year
  Sex: Male
  Weight: 85.26 kg

DRUGS (12)
  1. ATEZOLIZUMAB [Suspect]
     Active Substance: ATEZOLIZUMAB
     Indication: Colon cancer
     Route: 041
     Dates: start: 20220720
  2. DULCOLAX (BISACODYL) [Concomitant]
     Active Substance: BISACODYL
  3. METOPROLOL TARTRATE [Concomitant]
     Active Substance: METOPROLOL TARTRATE
  4. LOSARTAN POTASSIUM [Concomitant]
     Active Substance: LOSARTAN POTASSIUM
  5. DOCUSATE SODIUM [Concomitant]
     Active Substance: DOCUSATE SODIUM
  6. IBUPROFEN [Concomitant]
     Active Substance: IBUPROFEN
  7. CALCIUM [Concomitant]
     Active Substance: CALCIUM
  8. MAGNESIUM [Concomitant]
     Active Substance: MAGNESIUM
  9. COENZYME Q10 [Concomitant]
     Active Substance: DIETARY SUPPLEMENT\UBIDECARENONE
  10. ESTRADIOL [Concomitant]
     Active Substance: ESTRADIOL
  11. LIPITOR [Concomitant]
     Active Substance: ATORVASTATIN CALCIUM
  12. VITAMIN D3 [Concomitant]
     Active Substance: CHOLECALCIFEROL

REACTIONS (1)
  - Hyponatraemia [Not Recovered/Not Resolved]

NARRATIVE: CASE EVENT DATE: 20220730
